FAERS Safety Report 8094017-6 (Version None)
Quarter: 2012Q1

REPORT INFORMATION
  Report Type: 
  Country: None (occurrence: None)
  Receive Date: 20120131
  Receipt Date: 20120125
  Transmission Date: 20120608
  Serious: Yes (Death)
  Sender: FDA-Public Use
  Company Number: PHEH2012US002223

PATIENT
  Sex: Female

DRUGS (9)
  1. CELEBREX [Concomitant]
  2. ADVAIR DISKUS 100/50 [Concomitant]
     Dosage: UNK UKN, UNK
  3. NEORAL [Suspect]
     Dosage: 75 MG, BID
  4. LASIX [Concomitant]
     Dosage: UNK UKN, UNK
  5. OMEPRAZOLE [Concomitant]
     Dosage: UNK UKN, UNK
  6. METAXALONE [Concomitant]
     Dosage: UNK UKN, UNK
  7. DICLOFENAC [Concomitant]
     Dosage: UNK UKN, UNK
  8. GABAPENTIN [Concomitant]
     Dosage: UNK UKN, UNK
  9. AZATHIOPRINE [Concomitant]
     Dosage: UNK UKN, UNK

REACTIONS (1)
  - DEATH [None]
